FAERS Safety Report 12749985 (Version 2)
Quarter: 2017Q3

REPORT INFORMATION
  Report Type: Spontaneous
  Country: US (occurrence: US)
  Receive Date: 20160915
  Receipt Date: 20170914
  Transmission Date: 20171127
  Serious: No
  Sender: FDA-Public Use
  Company Number: US-ASTELLAS-2016US018416

PATIENT
  Age: 79 Year
  Sex: Male

DRUGS (3)
  1. XTANDI [Suspect]
     Active Substance: ENZALUTAMIDE
     Route: 048
     Dates: start: 20160514, end: 201610
  2. XTANDI [Suspect]
     Active Substance: ENZALUTAMIDE
     Indication: PROSTATE CANCER
     Route: 048
     Dates: end: 20160429
  3. XTANDI [Suspect]
     Active Substance: ENZALUTAMIDE
     Route: 048
     Dates: start: 20160429, end: 20160514

REACTIONS (5)
  - Hyperhidrosis [Unknown]
  - Weight decreased [Unknown]
  - Toothache [Not Recovered/Not Resolved]
  - Headache [Unknown]
  - Decreased appetite [Unknown]

NARRATIVE: CASE EVENT DATE: 20160427
